FAERS Safety Report 14261469 (Version 1)
Quarter: 2017Q4

REPORT INFORMATION
  Report Type: Spontaneous
  Country: AU (occurrence: AU)
  Receive Date: 20171208
  Receipt Date: 20171208
  Transmission Date: 20180321
  Serious: Yes (Other)
  Sender: FDA-Public Use
  Company Number: AU-ROCHE-1739460

PATIENT
  Sex: Female

DRUGS (2)
  1. PEGASYS [Suspect]
     Active Substance: PEGINTERFERON ALFA-2A
     Dosage: STRENGTH - 135 MCG/0.5 ML SYRINGE
     Route: 058
  2. PEGASYS [Suspect]
     Active Substance: PEGINTERFERON ALFA-2A
     Indication: CHRONIC MYELOID LEUKAEMIA
     Dosage: STRENGTH - 180 MCG/0.5 ML SYRINGE PFS
     Route: 058

REACTIONS (3)
  - Intentional product use issue [Unknown]
  - Cytopenia [Unknown]
  - Off label use [Unknown]
